FAERS Safety Report 16976778 (Version 1)
Quarter: 2019Q4

REPORT INFORMATION
  Report Type: Spontaneous
  Country: PL (occurrence: PL)
  Receive Date: 20191030
  Receipt Date: 20191030
  Transmission Date: 20200122
  Serious: Yes (Life-Threatening, Hospitalization, Other)
  Sender: FDA-Public Use
  Company Number: PL-GILEAD-2019-0435263

PATIENT
  Age: 45 Year
  Sex: Female
  Weight: 50 kg

DRUGS (12)
  1. MABTHERA [Suspect]
     Active Substance: RITUXIMAB
     Indication: CHRONIC LYMPHOCYTIC LEUKAEMIA
     Dosage: DAY 1. 2 LINE
     Route: 042
     Dates: start: 20101117
  2. CYCLOPHOSPHAMIDE. [Suspect]
     Active Substance: CYCLOPHOSPHAMIDE
     Dosage: FREQUENCY : DAYS 1 TO 3.
     Route: 042
     Dates: start: 20070111, end: 20070521
  3. CYCLOPHOSPHAMIDE. [Suspect]
     Active Substance: CYCLOPHOSPHAMIDE
     Dosage: 445 MG
     Route: 042
     Dates: start: 200803, end: 200805
  4. MILURIT [Concomitant]
     Active Substance: ALLOPURINOL
     Route: 065
  5. ENTOCORT [Concomitant]
     Active Substance: BUDESONIDE
  6. ZOFRAN [Concomitant]
     Active Substance: ONDANSETRON HYDROCHLORIDE
     Route: 065
  7. IDELALISIB [Suspect]
     Active Substance: IDELALISIB
     Indication: CHRONIC LYMPHOCYTIC LEUKAEMIA
     Route: 065
  8. CYCLOPHOSPHAMIDE. [Suspect]
     Active Substance: CYCLOPHOSPHAMIDE
     Indication: CHRONIC LYMPHOCYTIC LEUKAEMIA
     Dosage: 2 LINE DAY1-3
     Route: 042
     Dates: start: 20101117, end: 20110409
  9. CLADRIBINE. [Suspect]
     Active Substance: CLADRIBINE
     Dosage: FREQUENCY : DAYS 1 TO 3.
     Route: 042
     Dates: start: 20070111, end: 20070521
  10. CLADRIBINE. [Suspect]
     Active Substance: CLADRIBINE
     Indication: CHRONIC LYMPHOCYTIC LEUKAEMIA
     Dosage: 2 LINE, DAYS 1 - 3
     Route: 042
     Dates: start: 20101117, end: 20110409
  11. MABTHERA [Suspect]
     Active Substance: RITUXIMAB
     Dosage: DAY 1. 2 LINE
     Route: 042
     Dates: start: 200803, end: 200805
  12. CLADRIBINE. [Suspect]
     Active Substance: CLADRIBINE
     Dosage: FREQUENCY : DAYS 1 TO 3.
     Route: 042
     Dates: start: 200803, end: 200805

REACTIONS (19)
  - Leukocytosis [Unknown]
  - Sleep disorder [Unknown]
  - Pneumonia [Unknown]
  - Tachycardia [Unknown]
  - Dehydration [Unknown]
  - Hepatic failure [Unknown]
  - Asthenia [Unknown]
  - Electrolyte imbalance [Unknown]
  - Illogical thinking [Unknown]
  - Hepatomegaly [Unknown]
  - Renal failure [Unknown]
  - Night sweats [Unknown]
  - Herpes zoster [Unknown]
  - Hypotension [Unknown]
  - Respiratory rate increased [Unknown]
  - Diarrhoea [Unknown]
  - Agranulocytosis [Recovered/Resolved]
  - Anuria [Unknown]
  - Altered state of consciousness [Unknown]

NARRATIVE: CASE EVENT DATE: 200805
